FAERS Safety Report 8043282-X (Version None)
Quarter: 2012Q1

REPORT INFORMATION
  Report Type: 
  Country: None (occurrence: None)
  Receive Date: 20120112
  Receipt Date: 20120110
  Transmission Date: 20120608
  Serious: Yes (Death)
  Sender: FDA-Public Use
  Company Number: US-GLAXOSMITHKLINE-A0916440A

PATIENT
  Age: 50 Year
  Sex: Female
  Weight: 122.7 kg

DRUGS (7)
  1. ARANESP [Concomitant]
  2. GLUCOPHAGE [Concomitant]
  3. SYNTHROID [Concomitant]
  4. AVANDIA [Suspect]
     Indication: DIABETES MELLITUS
     Dosage: 4MG TWICE PER DAY
     Dates: start: 20010901, end: 20070301
  5. TEGRETOL [Concomitant]
  6. TOPROL-XL [Concomitant]
  7. EFFEXOR [Concomitant]

REACTIONS (2)
  - CARDIAC ARREST [None]
  - CONGESTIVE CARDIOMYOPATHY [None]
